FAERS Safety Report 5868786-7 (Version None)
Quarter: 2008Q3

REPORT INFORMATION
  Report Type: 
  Country: None (occurrence: None)
  Receive Date: 20080828
  Receipt Date: 20080819
  Transmission Date: 20090109
  Serious: Yes (Other)
  Sender: FDA-Public Use
  Company Number: OXP20080001

PATIENT
  Age: 27 Year
  Sex: Female

DRUGS (2)
  1. OXAPROZIN [Suspect]
     Dosage: UNKNOWN, UNKNOWN, UNKNOWN
  2. OXCARBAZEPINE [Concomitant]

REACTIONS (3)
  - DRUG DISPENSING ERROR [None]
  - GRAND MAL CONVULSION [None]
  - WRONG DRUG ADMINISTERED [None]
